FAERS Safety Report 26066359 (Version 2)
Quarter: 2025Q4

REPORT INFORMATION
  Report Type: Spontaneous
  Country: US (occurrence: US)
  Receive Date: 20251119
  Receipt Date: 20251216
  Transmission Date: 20260117
  Serious: Yes (Other)
  Sender: NOVO NORDISK
  Company Number: US-NOVOPROD-1562081

PATIENT
  Sex: Female

DRUGS (1)
  1. WEGOVY [Suspect]
     Active Substance: SEMAGLUTIDE
     Indication: Product used for unknown indication
     Dosage: 1.7 MG
     Dates: start: 202211, end: 202304

REACTIONS (5)
  - Biliary obstruction [Unknown]
  - Cholestasis [Unknown]
  - Cholelithiasis [Unknown]
  - Dehydration [Unknown]
  - Vomiting [Unknown]
